FAERS Safety Report 7558930-8 (Version None)
Quarter: 2011Q2

REPORT INFORMATION
  Report Type: 
  Country: None (occurrence: None)
  Receive Date: 20110613
  Receipt Date: 20110527
  Transmission Date: 20111010
  Serious: Yes (Other)
  Sender: FDA-Public Use
  Company Number: GPV/SAF/11/0018652

PATIENT
  Age: 34 Year
  Sex: Male

DRUGS (1)
  1. RISPERIDONE [Suspect]
     Indication: BIPOLAR I DISORDER
     Dosage: 2 MG, PER ORAL
     Route: 048
     Dates: start: 20100723, end: 20100724

REACTIONS (3)
  - URTICARIA [None]
  - DYSTONIA [None]
  - OCULOGYRIC CRISIS [None]
